FAERS Safety Report 8554241 (Version 2)
Quarter: 2012Q4

REPORT INFORMATION
  Report Type: 
  Country: US (occurrence: US)
  Receive Date: 20120509
  Receipt Date: 20121221
  Transmission Date: 20130627
  Serious: Yes (Hospitalization, Other)
  Sender: FDA-Public Use
  Company Number: US-ELI_LILLY_AND_COMPANY-US201204009628

PATIENT
  Age: 73 Year
  Sex: Female

DRUGS (14)
  1. FORTEO [Suspect]
     Indication: OSTEOPOROSIS
     Dosage: 20 ug, qd
     Dates: start: 20120301, end: 20120417
  2. FORTEO [Suspect]
     Dosage: 20 ug, qd
  3. SURFAK [Concomitant]
     Dosage: 240 mg, unknown
  4. FOSAMAX [Concomitant]
  5. TEMAZEPAM [Concomitant]
  6. LASIX                              /00032601/ [Concomitant]
  7. SYNTHROID [Concomitant]
  8. DICLOFENAC SODIUM [Concomitant]
  9. TRIGLIDE [Concomitant]
  10. NEXIUM [Concomitant]
  11. SIMVASTATIN [Concomitant]
  12. ATENOLOL [Concomitant]
  13. HYDROCODONE W/ACETAMINOPHEN [Concomitant]
  14. GABAPENTIN [Concomitant]

REACTIONS (3)
  - Myocardial infarction [Unknown]
  - Urinary tract infection [Unknown]
  - Drug dose omission [Unknown]
